FAERS Safety Report 10236473 (Version 1)
Quarter: 2014Q2

REPORT INFORMATION
  Report Type: Spontaneous
  Country: FR (occurrence: FR)
  Receive Date: 20140613
  Receipt Date: 20140613
  Transmission Date: 20141212
  Serious: Yes (Other)
  Sender: FDA-Public Use
  Company Number: FR-BRISTOL-MYERS SQUIBB COMPANY-20941787

PATIENT
  Age: 48 Year
  Sex: Male

DRUGS (1)
  1. REYATAZ CAPS [Suspect]
     Dates: start: 201005

REACTIONS (2)
  - Jaundice [Unknown]
  - Hypersensitivity vasculitis [Unknown]
